FAERS Safety Report 24121567 (Version 1)
Quarter: 2024Q3

REPORT INFORMATION
  Report Type: Spontaneous
  Country: US (occurrence: None)
  Receive Date: 20240722
  Receipt Date: 20240722
  Transmission Date: 20241016
  Serious: No
  Sender: Public
  Company Number: None

PATIENT
  Sex: Female

DRUGS (1)
  1. TERIPARATIDE [Suspect]
     Active Substance: TERIPARATIDE
     Indication: Senile osteoporosis
     Dosage: FREQ: INJECT 20 MCG UNDER THE SKIN (SUBCUTANEOUS INJECTION) INTO THE THIGH OR ABDOMINAL WALL ONCE A
     Route: 058

REACTIONS (4)
  - Forearm fracture [None]
  - Loss of personal independence in daily activities [None]
  - Social problem [None]
  - Humerus fracture [None]
